FAERS Safety Report 7458034-9 (Version None)
Quarter: 2011Q2

REPORT INFORMATION
  Report Type: 
  Country: None (occurrence: None)
  Receive Date: 20110504
  Receipt Date: 20110502
  Transmission Date: 20111010
  Serious: Yes (Hospitalization, Other)
  Sender: FDA-Public Use
  Company Number: US-ABBOTT-11P-163-0717624-00

PATIENT
  Age: 55 Year
  Sex: Female

DRUGS (5)
  1. SYNTHROID [Concomitant]
     Indication: HYPOTHYROIDISM
  2. REMERON [Concomitant]
     Indication: DEPRESSION
  3. HUMIRA [Suspect]
     Indication: CROHN'S DISEASE
     Dates: start: 20101202, end: 20110425
  4. ZOFRAN [Concomitant]
     Indication: DEPRESSION
  5. ATIVAN [Concomitant]
     Indication: ANXIETY

REACTIONS (8)
  - VISION BLURRED [None]
  - INTESTINAL OBSTRUCTION [None]
  - CROHN'S DISEASE [None]
  - DECREASED APPETITE [None]
  - VOMITING [None]
  - VISUAL IMPAIRMENT [None]
  - NAUSEA [None]
  - ABDOMINAL PAIN [None]
